FAERS Safety Report 7778307-X (Version None)
Quarter: 2011Q3

REPORT INFORMATION
  Report Type: 
  Country: None (occurrence: None)
  Receive Date: 20110926
  Receipt Date: 20110912
  Transmission Date: 20111222
  Serious: Yes (Other)
  Sender: FDA-Public Use
  Company Number: US-BAYER-2011-089420

PATIENT
  Sex: Female

DRUGS (3)
  1. CIPROFLOXACIN [Suspect]
     Indication: URINARY TRACT INFECTION
  2. PLAVIX [Concomitant]
  3. CARDIZEM [Concomitant]

REACTIONS (2)
  - MALAISE [None]
  - URINARY TRACT INFECTION [None]
